FAERS Safety Report 24973755 (Version 1)
Quarter: 2025Q1

REPORT INFORMATION
  Report Type: Spontaneous
  Country: ZA (occurrence: ZA)
  Receive Date: 20250217
  Receipt Date: 20250217
  Transmission Date: 20250409
  Serious: Yes (Other)
  Sender: AMGEN
  Company Number: ZA-SERVIER-S24018813

PATIENT
  Age: 63 Year
  Sex: Male

DRUGS (17)
  1. IVABRADINE HYDROCHLORIDE [Suspect]
     Active Substance: IVABRADINE HYDROCHLORIDE
     Indication: Angina pectoris
     Dosage: 5 MG TAKE ONE TABLET DAILY
     Route: 048
  2. ACETAMINOPHEN\TRAMADOL [Concomitant]
     Active Substance: ACETAMINOPHEN\TRAMADOL
     Indication: Pain
     Dosage: TAKE TWO TABLETS TWICE A DAY
     Route: 048
  3. Adco Zolpidem Hemitatrate [Concomitant]
     Indication: Insomnia
     Dosage: 10 MG TAKE TWO TABLET AT NIGHT
     Route: 048
  4. DAPAGLIFLOZIN [Concomitant]
     Active Substance: DAPAGLIFLOZIN
     Indication: Diabetes mellitus
     Dosage: 10 MG TAKE ONE TABLET DAILY
     Route: 048
  5. ECOTRIN [Concomitant]
     Active Substance: ASPIRIN
     Indication: Anticoagulant therapy
     Dosage: 81 MG TAKE ONE TABLET DAILY
     Route: 048
  6. Allergex [Concomitant]
     Indication: Hypersensitivity
     Dosage: 4 MG TAKE ONE TABLET WHEN NECESSARY
     Route: 048
  7. ANDOLEX C [Concomitant]
     Indication: Product used for unknown indication
     Route: 048
  8. ACETAMINOPHEN [Concomitant]
     Active Substance: ACETAMINOPHEN
     Indication: Product used for unknown indication
     Route: 048
  9. ZOLPIDEM TARTRATE [Concomitant]
     Active Substance: ZOLPIDEM TARTRATE
     Indication: Insomnia
     Dosage: 10 MG TAKE ONE TABLET AT NIGHT
     Route: 048
  10. K fenak [Concomitant]
     Indication: Product used for unknown indication
     Dosage: 50 MG TAKE ONE TABLET WHEN NECESSARY AFTER A MEAL(S)
     Route: 048
  11. ILIADIN [Concomitant]
     Indication: Product used for unknown indication
     Route: 045
  12. Nazene [Concomitant]
     Indication: Product used for unknown indication
     Route: 048
  13. LOSARTAN POTASSIUM [Concomitant]
     Active Substance: LOSARTAN POTASSIUM
     Indication: Hypertension
     Dosage: 50 MG TAKE ONE TABLET DAILY
     Route: 048
  14. ESCITALOPRAM [Concomitant]
     Active Substance: ESCITALOPRAM OXALATE
     Indication: Depression
     Dosage: 10 MG TAKE ONE TABLET ORALLY IN THE MORNING
     Route: 048
  15. ISMO [Concomitant]
     Active Substance: ISOSORBIDE MONONITRATE
     Indication: Angina pectoris
     Dosage: 20 MG TAKE HALF A TABLET TWICE A DAY
     Route: 048
  16. FUROSEMIDE [Concomitant]
     Active Substance: FUROSEMIDE
     Indication: Hypertension
     Dosage: 40 MG TAKE ONE TABLET DAILY
     Route: 048
  17. Spiractin [Concomitant]
     Indication: Hypertension
     Dosage: 25 MG TAKE ONE TABLET DAILY
     Route: 048

REACTIONS (3)
  - Cardiac failure [Unknown]
  - Pyrexia [Unknown]
  - Product use issue [Recovered/Resolved]
